FAERS Safety Report 8347767-8 (Version None)
Quarter: 2012Q2

REPORT INFORMATION
  Report Type: 
  Country: None (occurrence: None)
  Receive Date: 20120509
  Receipt Date: 20110602
  Transmission Date: 20120825
  Serious: Yes (Other)
  Sender: FDA-Public Use
  Company Number: US-GLAXOSMITHKLINE-A0931042A

PATIENT
  Age: 21 Year
  Sex: Female

DRUGS (1)
  1. AVANDIA [Suspect]
     Indication: DIABETES MELLITUS
     Dosage: 4MG PER DAY
     Route: 048
     Dates: start: 20070219, end: 20070101

REACTIONS (3)
  - CEREBROVASCULAR ACCIDENT [None]
  - CARDIAC DISORDER [None]
  - CARDIOVASCULAR DISORDER [None]
